FAERS Safety Report 22538159 (Version 1)
Quarter: 2023Q2

REPORT INFORMATION
  Report Type: Other
  Country: JP (occurrence: JP)
  Receive Date: 20230608
  Receipt Date: 20230608
  Transmission Date: 20230722
  Serious: Yes (Other)
  Sender: FDA-Public Use
  Company Number: JP-CHUGAI-2023019523

PATIENT
  Age: 63 Year
  Sex: Male

DRUGS (5)
  1. SATRALIZUMAB [Suspect]
     Active Substance: SATRALIZUMAB
     Indication: Neuromyelitis optica spectrum disorder
     Route: 058
     Dates: start: 20201012, end: 20201109
  2. SATRALIZUMAB [Suspect]
     Active Substance: SATRALIZUMAB
     Route: 058
     Dates: start: 20201207
  3. AZATHIOPRINE [Concomitant]
     Active Substance: AZATHIOPRINE
     Indication: Neuromyelitis optica spectrum disorder
     Dosage: UNK
     Route: 065
  4. AZATHIOPRINE [Concomitant]
     Active Substance: AZATHIOPRINE
     Dosage: UNK
     Route: 065
     Dates: start: 20201012, end: 20210328
  5. PREDNISOLONE [Concomitant]
     Active Substance: PREDNISOLONE
     Indication: Neuromyelitis optica spectrum disorder
     Dosage: 5 MILLIGRAM /DAY
     Route: 048
     Dates: start: 20201012, end: 20201206

REACTIONS (1)
  - Pneumonia [Recovering/Resolving]

NARRATIVE: CASE EVENT DATE: 20230529
